FAERS Safety Report 11530106 (Version 1)
Quarter: 2015Q3

REPORT INFORMATION
  Report Type: Spontaneous
  Country: US (occurrence: US)
  Receive Date: 20150921
  Receipt Date: 20150921
  Transmission Date: 20151125
  Serious: No
  Sender: FDA-Public Use
  Company Number: US-GLAXOSMITHKLINE-US2015GSK133557

PATIENT
  Sex: Female

DRUGS (1)
  1. TANZEUM [Suspect]
     Active Substance: ALBIGLUTIDE
     Indication: TYPE 2 DIABETES MELLITUS
     Dosage: 30 MG, WE
     Dates: start: 201504

REACTIONS (8)
  - Drug ineffective [Unknown]
  - Device use error [Unknown]
  - Diarrhoea [Unknown]
  - Exposure via direct contact [Unknown]
  - Injection site reaction [Unknown]
  - Injection site swelling [Unknown]
  - Underdose [Unknown]
  - Device leakage [Unknown]
